FAERS Safety Report 9388772 (Version 1)
Quarter: 2013Q3

REPORT INFORMATION
  Report Type: Report from Study
  Country: KR (occurrence: KR)
  Receive Date: 20130708
  Receipt Date: 20130708
  Transmission Date: 20140515
  Serious: Yes (Hospitalization)
  Sender: FDA-Public Use
  Company Number: KR-GLAXOSMITHKLINE-B0906037A

PATIENT
  Age: 50 Year
  Sex: Female
  Weight: 57.9 kg

DRUGS (4)
  1. LAPATINIB [Suspect]
     Indication: BREAST CANCER
     Dosage: 1250MG PER DAY
     Route: 048
     Dates: start: 20101109, end: 20110517
  2. OXYCODONE [Concomitant]
     Indication: PAIN
     Dosage: 5MG PER DAY
     Route: 048
     Dates: start: 20101109, end: 20110427
  3. HYDROMORPHONE [Concomitant]
     Indication: PAIN
     Dosage: 16MG PER DAY
     Route: 048
     Dates: start: 20101109, end: 20110427
  4. CAPECITABINE [Concomitant]
     Indication: BREAST CANCER
     Dosage: 3200MG TWICE PER DAY
     Route: 048
     Dates: start: 20101109, end: 20110517

REACTIONS (1)
  - Asthenia [Recovered/Resolved]
